FAERS Safety Report 23417243 (Version 1)
Quarter: 2024Q1

REPORT INFORMATION
  Report Type: Spontaneous
  Country: CN (occurrence: None)
  Receive Date: 20240118
  Receipt Date: 20240118
  Transmission Date: 20240409
  Serious: Yes (Other)
  Sender: FDA-Public Use
  Company Number: 2024A010133

PATIENT
  Age: 25202 Day
  Sex: Male

DRUGS (6)
  1. BUDESONIDE [Suspect]
     Active Substance: BUDESONIDE
     Indication: Productive cough
     Route: 045
     Dates: start: 20231230, end: 20240104
  2. IPRATROPIUM BROMIDE [Suspect]
     Active Substance: IPRATROPIUM BROMIDE\IPRATROPIUM BROMIDE ANHYDROUS
     Indication: Productive cough
     Dates: start: 20231230, end: 20240110
  3. LEVOFLOXACIN [Concomitant]
     Active Substance: LEVOFLOXACIN
  4. SODIUM HYALURONATE EYE DROPS [Concomitant]
  5. TOBRAMYCIN EYE OINTMENT [Concomitant]
  6. DEPROTEINIZED CALF BLOOD EXTRACT EYE GEL [Concomitant]

REACTIONS (2)
  - Cataract [Unknown]
  - Keratitis [Unknown]
